FAERS Safety Report 21499577 (Version 1)
Quarter: 2022Q4

REPORT INFORMATION
  Report Type: Spontaneous
  Country: US (occurrence: None)
  Receive Date: 20221024
  Receipt Date: 20221024
  Transmission Date: 20230113
  Serious: No
  Sender: FDA-Public Use
  Company Number: None

PATIENT
  Age: 37 Year
  Sex: Female
  Weight: 51.75 kg

DRUGS (1)
  1. MODAFINIL [Suspect]
     Active Substance: MODAFINIL
     Indication: Narcolepsy
     Dosage: OTHER QUANTITY : 1 TABLET(S);?
     Route: 048
     Dates: start: 20101001

REACTIONS (5)
  - Product substitution issue [None]
  - Drug ineffective [None]
  - Product quality issue [None]
  - Attention deficit hyperactivity disorder [None]
  - Disease complication [None]

NARRATIVE: CASE EVENT DATE: 20221023
